FAERS Safety Report 6431684-4 (Version None)
Quarter: 2009Q4

REPORT INFORMATION
  Report Type: 
  Country: None (occurrence: None)
  Receive Date: 20091103
  Receipt Date: 20091027
  Transmission Date: 20100525
  Serious: Yes (Hospitalization, Other)
  Sender: FDA-Public Use
  Company Number: A-US2009-28891

PATIENT
  Age: 40 Year
  Sex: Female

DRUGS (1)
  1. VENTAVIS [Suspect]
     Indication: PULMONARY ARTERIAL HYPERTENSION
     Dosage: RESPIRATORY
     Route: 055

REACTIONS (4)
  - COMA [None]
  - DISEASE PROGRESSION [None]
  - HYPOTENSION [None]
  - PULMONARY ARTERIAL HYPERTENSION [None]
